FAERS Safety Report 7022913-7 (Version None)
Quarter: 2010Q3

REPORT INFORMATION
  Report Type: 
  Country: None (occurrence: None)
  Receive Date: 20100930
  Receipt Date: 20100922
  Transmission Date: 20110219
  Serious: Yes (Other)
  Sender: FDA-Public Use
  Company Number: US-BAXTER-2010BH024201

PATIENT
  Sex: Female

DRUGS (1)
  1. FORANE [Suspect]
     Indication: OCCUPATIONAL EXPOSURE TO DRUG
     Route: 065

REACTIONS (2)
  - CHEST DISCOMFORT [None]
  - HYPERSENSITIVITY [None]
